FAERS Safety Report 5935079-9 (Version None)
Quarter: 2008Q4

REPORT INFORMATION
  Report Type: 
  Country: None (occurrence: None)
  Receive Date: 20081030
  Receipt Date: 20081023
  Transmission Date: 20090506
  Serious: Yes (Other)
  Sender: FDA-Public Use
  Company Number: JP-JNJFOC-20081001268

PATIENT
  Age: 79 Year
  Sex: Female

DRUGS (1)
  1. ITRIZOLE [Suspect]
     Indication: FEBRILE NEUTROPENIA
     Route: 041

REACTIONS (1)
  - INTERSTITIAL LUNG DISEASE [None]
